FAERS Safety Report 9944020 (Version 1)
Quarter: 2014Q1

REPORT INFORMATION
  Report Type: Spontaneous
  Country: DE (occurrence: DE)
  Receive Date: 20140303
  Receipt Date: 20140303
  Transmission Date: 20141002
  Serious: Yes (Life-Threatening)
  Sender: FDA-Public Use
  Company Number: DE-WATSON-2014-03323

PATIENT
  Age: 47 Year
  Sex: Female

DRUGS (10)
  1. METOPROLOL (UNKNOWN) [Suspect]
     Indication: PRODUCT USED FOR UNKNOWN INDICATION
     Dosage: 47.5 MG, DAILY
     Route: 048
     Dates: start: 20060601, end: 20060623
  2. CIPRAMIL /00582602/ [Suspect]
     Indication: PRODUCT USED FOR UNKNOWN INDICATION
     Dosage: 10 MG, DAILY
     Route: 048
     Dates: start: 20060607, end: 20060610
  3. CIPRAMIL /00582602/ [Suspect]
     Dosage: 20 UNK, UNK
     Route: 048
     Dates: start: 20060611, end: 20060617
  4. CIPRAMIL /00582602/ [Suspect]
     Dosage: 15 UNK, UNK
     Route: 048
     Dates: start: 20060615, end: 20060625
  5. QUILONORM RETARD [Suspect]
     Indication: PRODUCT USED FOR UNKNOWN INDICATION
     Dosage: 225 MG, DAILY
     Route: 048
     Dates: start: 20060712, end: 20060717
  6. QUILONORM RETARD [Suspect]
     Dosage: 450 MG, DAILY
     Route: 048
     Dates: start: 20060718, end: 20060725
  7. TAVOR                              /00273201/ [Concomitant]
     Indication: PRODUCT USED FOR UNKNOWN INDICATION
     Dosage: 2 MG, DAILY
     Route: 048
     Dates: start: 20060606, end: 20060614
  8. TAVOR                              /00273201/ [Concomitant]
     Dosage: 1 MG, DAILY
     Route: 048
     Dates: start: 20060615, end: 20060629
  9. TAVOR                              /00273201/ [Concomitant]
     Dosage: 0.5 MG, DAILY
     Route: 048
     Dates: start: 20060630
  10. DIPIPERON [Concomitant]
     Indication: PRODUCT USED FOR UNKNOWN INDICATION
     Dosage: 120 MG, DAILY
     Route: 048
     Dates: start: 20060804, end: 20060809

REACTIONS (1)
  - Sinus bradycardia [Recovered/Resolved]
